FAERS Safety Report 7324328-0 (Version None)
Quarter: 2011Q1

REPORT INFORMATION
  Report Type: 
  Country: None (occurrence: None)
  Receive Date: 20110301
  Receipt Date: 20110218
  Transmission Date: 20110831
  Serious: Yes (Hospitalization)
  Sender: FDA-Public Use
  Company Number: FR-PFIZER INC-2011037419

PATIENT
  Age: 76 Year
  Sex: Male

DRUGS (1)
  1. SIROLIMUS [Suspect]
     Dosage: UNKNOWN

REACTIONS (2)
  - POST HERPETIC NEURALGIA [None]
  - WEIGHT DECREASED [None]
